FAERS Safety Report 7423393-X (Version None)
Quarter: 2011Q2

REPORT INFORMATION
  Report Type: 
  Country: None (occurrence: None)
  Receive Date: 20110419
  Receipt Date: 20110406
  Transmission Date: 20111010
  Serious: Yes (Other)
  Sender: FDA-Public Use
  Company Number: PHHY2011JP30016

PATIENT
  Age: 69 Year
  Sex: Male

DRUGS (8)
  1. BIOFERMIN [Concomitant]
     Dosage: 2 DF, UNK
     Route: 048
  2. DIOVAN [Suspect]
     Indication: HYPERTENSION
     Dosage: 80 MG, ONCE DAILY
     Route: 048
     Dates: start: 20100512, end: 20110406
  3. AMLODIPINE [Concomitant]
     Dosage: 10 MG, UNK
     Route: 048
  4. DIOVAN [Suspect]
     Dosage: 160 MG, ONCE DAILY
     Route: 048
     Dates: start: 20101025
  5. ADALAT [Concomitant]
     Dosage: UNK
     Dates: start: 20100512
  6. DIOVAN [Suspect]
     Dosage: 80 MG, BID
     Route: 048
     Dates: start: 20100515
  7. GASLON [Concomitant]
     Dosage: 4 MG, UNK
     Route: 048
  8. ZYLORIC [Concomitant]
     Dosage: 200 MG, UNK
     Route: 048

REACTIONS (1)
  - BLOOD CREATINE PHOSPHOKINASE INCREASED [None]
